FAERS Safety Report 7866073-9 (Version None)
Quarter: 2011Q4

REPORT INFORMATION
  Report Type: 
  Country: None (occurrence: None)
  Receive Date: 20111028
  Receipt Date: 20110419
  Transmission Date: 20120403
  Serious: No
  Sender: FDA-Public Use
  Company Number: US-GLAXOSMITHKLINE-A0923583A

PATIENT
  Sex: Female

DRUGS (12)
  1. ACIDOPHILUS [Concomitant]
  2. ALENDRONATE SODIUM [Concomitant]
  3. VITAMIN D [Concomitant]
  4. ASCORBIC ACID [Concomitant]
  5. ADVAIR DISKUS 100/50 [Suspect]
     Indication: ASTHMA
     Dosage: 1PUFF PER DAY
     Route: 055
     Dates: start: 20030401
  6. FOLIC ACID [Concomitant]
  7. CETIRIZINE HCL [Concomitant]
  8. VENTOLIN [Concomitant]
  9. VITAMIN B-12 [Concomitant]
  10. CALCIUM CARBONATE [Concomitant]
  11. PREVACID [Concomitant]
  12. SIMVASTATIN [Concomitant]

REACTIONS (3)
  - COUGH [None]
  - OROPHARYNGEAL DISCOMFORT [None]
  - DYSPHONIA [None]
